FAERS Safety Report 25427974 (Version 1)
Quarter: 2025Q2

REPORT INFORMATION
  Report Type: Spontaneous
  Country: BG (occurrence: BG)
  Receive Date: 20250612
  Receipt Date: 20250612
  Transmission Date: 20250716
  Serious: Yes (Death, Other)
  Sender: PFIZER
  Company Number: BG-PFIZER INC-PV202500070148

PATIENT
  Age: 46 Year
  Sex: Female

DRUGS (3)
  1. TUKYSA [Suspect]
     Active Substance: TUCATINIB
     Indication: Breast cancer metastatic
     Route: 048
     Dates: start: 20240424, end: 202501
  2. HERCEPTIN [Concomitant]
     Active Substance: TRASTUZUMAB
     Indication: Breast cancer metastatic
     Route: 065
     Dates: start: 20240424, end: 202501
  3. CAPECITABINE [Concomitant]
     Active Substance: CAPECITABINE
     Indication: Breast cancer metastatic
     Route: 065
     Dates: start: 20240424, end: 202501

REACTIONS (7)
  - Dyspepsia [Fatal]
  - Asthenia [Fatal]
  - Multiple organ dysfunction syndrome [Fatal]
  - Ascites [Fatal]
  - Metastases to central nervous system [Unknown]
  - Metastases to meninges [Unknown]
  - Headache [Unknown]

NARRATIVE: CASE EVENT DATE: 20240801
